FAERS Safety Report 24437275 (Version 1)
Quarter: 2024Q4

REPORT INFORMATION
  Report Type: Spontaneous
  Country: US (occurrence: None)
  Receive Date: 20241011
  Receipt Date: 20241011
  Transmission Date: 20250114
  Serious: Yes (Hospitalization)
  Sender: Public
  Company Number: None

PATIENT
  Age: 77 Year
  Sex: Male
  Weight: 63 kg

DRUGS (1)
  1. NIVOLUMAB [Suspect]
     Active Substance: NIVOLUMAB
     Indication: Ureteric cancer
     Dosage: OTHER FREQUENCY : OTHER;?
     Route: 042
     Dates: start: 20240111, end: 20240411

REACTIONS (4)
  - Rash [None]
  - Dermatitis psoriasiform [None]
  - Drug eruption [None]
  - Drug ineffective [None]

NARRATIVE: CASE EVENT DATE: 20240411
